FAERS Safety Report 14933763 (Version 1)
Quarter: 2018Q2

REPORT INFORMATION
  Report Type: Spontaneous
  Country: US (occurrence: US)
  Receive Date: 20180524
  Receipt Date: 20180524
  Transmission Date: 20180711
  Serious: No
  Sender: FDA-Public Use
  Company Number: US-PFIZER INC-2018209139

PATIENT
  Age: 57 Year
  Sex: Female
  Weight: 54.42 kg

DRUGS (2)
  1. ALPRAZOLAM. [Suspect]
     Active Substance: ALPRAZOLAM
     Indication: SLEEP DISORDER
     Dosage: UNK UNK, 1X/DAY(0.5-1 TABLET BY MOUTH ONCE DAILY)
     Route: 048
  2. ALPRAZOLAM. [Suspect]
     Active Substance: ALPRAZOLAM
     Indication: ANXIETY
     Dosage: 0.5 MG, DAILY(2 TABLETS BY MOUTH DAILY )
     Route: 048

REACTIONS (3)
  - Intentional product misuse [Unknown]
  - Drug ineffective [Not Recovered/Not Resolved]
  - Product physical consistency issue [Unknown]

NARRATIVE: CASE EVENT DATE: 201805
